FAERS Safety Report 14671937 (Version 3)
Quarter: 2019Q4

REPORT INFORMATION
  Report Type: Report from Study
  Country: US (occurrence: US)
  Receive Date: 20180323
  Receipt Date: 20191011
  Transmission Date: 20200122
  Serious: Yes (Other)
  Sender: FDA-Public Use
  Company Number: US-AMGEN-USASL2018037300

PATIENT
  Age: 84 Year
  Sex: Female

DRUGS (1)
  1. PROLIA [Suspect]
     Active Substance: DENOSUMAB
     Indication: OSTEOPOROSIS POSTMENOPAUSAL
     Dosage: UNK
     Route: 065
     Dates: start: 2016

REACTIONS (8)
  - Pain in jaw [Unknown]
  - Back pain [Unknown]
  - Endodontic procedure [Unknown]
  - Exposed bone in jaw [Unknown]
  - Post procedural swelling [Unknown]
  - Swelling face [Recovering/Resolving]
  - Basal cell carcinoma [Unknown]
  - Post procedural complication [Unknown]

NARRATIVE: CASE EVENT DATE: 2017
